FAERS Safety Report 20206574 (Version 3)
Quarter: 2022Q1

REPORT INFORMATION
  Report Type: Spontaneous
  Country: CO (occurrence: CO)
  Receive Date: 20211220
  Receipt Date: 20220318
  Transmission Date: 20220423
  Serious: Yes (Life-Threatening, Hospitalization, Other)
  Sender: FDA-Public Use
  Company Number: CO-LUPIN PHARMACEUTICALS INC.-2021-25035

PATIENT
  Age: 45 Year
  Sex: Female

DRUGS (6)
  1. LEVONORGESTREL [Suspect]
     Active Substance: LEVONORGESTREL
     Indication: Oral contraception
     Dosage: 0.15 MILLIGRAM, QD
     Route: 048
  2. LEVONORGESTREL [Suspect]
     Active Substance: LEVONORGESTREL
     Indication: Hormonal contraception
  3. ESTRADIOL [Suspect]
     Active Substance: ESTRADIOL
     Indication: Oral contraception
     Dosage: 0.03 MILLIGRAM, QD
     Route: 048
  4. ESTRADIOL [Suspect]
     Active Substance: ESTRADIOL
     Indication: Hormonal contraception
  5. AMPICILLIN SODIUM\SULBACTAM SODIUM [Concomitant]
     Active Substance: AMPICILLIN SODIUM\SULBACTAM SODIUM
     Indication: Evidence based treatment
     Dosage: UNK
     Route: 065
  6. OXYGEN [Concomitant]
     Active Substance: OXYGEN
     Indication: Product used for unknown indication
     Dosage: 12 L (INHALATION)
     Route: 055

REACTIONS (3)
  - Pulmonary embolism [Recovered/Resolved]
  - Obstructive shock [Recovered/Resolved]
  - Right ventricular dysfunction [Recovered/Resolved]
